FAERS Safety Report 11170921 (Version 2)
Quarter: 2015Q3

REPORT INFORMATION
  Report Type: Spontaneous
  Country: CH (occurrence: CH)
  Receive Date: 20150608
  Receipt Date: 20150701
  Transmission Date: 20151125
  Serious: Yes (Hospitalization)
  Sender: FDA-Public Use
  Company Number: CH-BIOGENIDEC-2015BI074324

PATIENT
  Sex: Female

DRUGS (5)
  1. AVONEX [Suspect]
     Active Substance: INTERFERON BETA-1A
     Indication: RELAPSING-REMITTING MULTIPLE SCLEROSIS
     Route: 030
     Dates: start: 201108, end: 201112
  2. BRUFEN [Concomitant]
     Active Substance: IBUPROFEN
  3. DAFALGAN [Concomitant]
     Active Substance: ACETAMINOPHEN
  4. AVONEX [Suspect]
     Active Substance: INTERFERON BETA-1A
     Indication: RELAPSING-REMITTING MULTIPLE SCLEROSIS
     Route: 030
     Dates: start: 201306, end: 201407
  5. KLAIRA [Concomitant]
     Active Substance: DIENOGEST\ETHINYL ESTRADIOL
     Indication: ORAL CONTRACEPTION

REACTIONS (3)
  - Acute psychosis [Recovered/Resolved]
  - Multiple sclerosis relapse [Unknown]
  - Histrionic personality disorder [Recovered/Resolved]

NARRATIVE: CASE EVENT DATE: 20140320
